FAERS Safety Report 16607511 (Version 1)
Quarter: 2019Q3

REPORT INFORMATION
  Report Type: Spontaneous
  Country: US (occurrence: US)
  Receive Date: 20190606
  Receipt Date: 20190606
  Transmission Date: 20191004
  Serious: Yes (Hospitalization)
  Sender: FDA-Public Use
  Company Number: None

PATIENT
  Age: 38 Year
  Sex: Male

DRUGS (10)
  1. ORKAMBI [Suspect]
     Active Substance: IVACAFTOR\LUMACAFTOR
     Indication: CYSTIC FIBROSIS
     Dosage: BY MOUTH WITH FAT CONTAINING FOODS
     Route: 048
     Dates: start: 201504
  2. ZENPEP [Suspect]
     Active Substance: PANCRELIPASE AMYLASE\PANCRELIPASE LIPASE\PANCRELIPASE PROTEASE
     Indication: CYSTIC FIBROSIS
     Dosage: 8 CAPSULES FIVE TIMES DAILY BY MOUH WITH MELS AND SNACKS
     Dates: start: 201504
  3. CAYSTON [Concomitant]
     Active Substance: AZTREONAM
  4. ZITHROMYCIN [Concomitant]
     Active Substance: AZITHROMYCIN ANHYDROUS
  5. AZITHROMYCIN ANHYDROUS. [Concomitant]
     Active Substance: AZITHROMYCIN ANHYDROUS
  6. MEROPENEM. [Concomitant]
     Active Substance: MEROPENEM
  7. ALBUTEROL. [Concomitant]
     Active Substance: ALBUTEROL
  8. PULMOZYME [Concomitant]
     Active Substance: DORNASE ALFA
  9. HUMALOG [Concomitant]
     Active Substance: INSULIN LISPRO
  10. TOBRAMYCIN. [Suspect]
     Active Substance: TOBRAMYCIN

REACTIONS (1)
  - Pneumothorax [None]

NARRATIVE: CASE EVENT DATE: 201905
